FAERS Safety Report 8978777 (Version 3)
Quarter: 2013Q2

REPORT INFORMATION
  Report Type: Spontaneous
  Country: US (occurrence: US)
  Receive Date: 20121220
  Receipt Date: 20130603
  Transmission Date: 20140414
  Serious: No
  Sender: FDA-Public Use
  Company Number: US-PFIZER INC-2012323512

PATIENT
  Age: 76 Year
  Sex: Female
  Weight: 59.9 kg

DRUGS (4)
  1. AROMASIN [Suspect]
     Dosage: UNK
  2. BENAZEPRIL [Concomitant]
     Indication: HYPERTENSION
     Dosage: 5 MG, UNK
  3. VITAMIN D [Concomitant]
     Dosage: UNK
  4. VITAMIN C [Concomitant]
     Dosage: UNK

REACTIONS (3)
  - Burning sensation [Not Recovered/Not Resolved]
  - Joint range of motion decreased [Unknown]
  - Local swelling [Recovered/Resolved]
